FAERS Safety Report 26110889 (Version 1)
Quarter: 2025Q4

REPORT INFORMATION
  Report Type: Spontaneous
  Country: SG (occurrence: SG)
  Receive Date: 20251202
  Receipt Date: 20251202
  Transmission Date: 20260118
  Serious: Yes (Other)
  Sender: NOVARTIS
  Company Number: SG-002147023-NVSC2025SG182940

PATIENT

DRUGS (1)
  1. ASCIMINIB [Suspect]
     Active Substance: ASCIMINIB
     Indication: Foetal exposure during pregnancy
     Dosage: UNK, PATERNAL EXPOSURE DURING PREGNANCY: 200 MG BID
     Route: 050

REACTIONS (2)
  - Spina bifida [Unknown]
  - Foetal exposure via father [Unknown]

NARRATIVE: CASE EVENT DATE: 20250401
